FAERS Safety Report 12195397 (Version 5)
Quarter: 2017Q3

REPORT INFORMATION
  Report Type: Report from Study
  Country: BR (occurrence: BR)
  Receive Date: 20160321
  Receipt Date: 20170928
  Transmission Date: 20171127
  Serious: Yes (Hospitalization)
  Sender: FDA-Public Use
  Company Number: PHHY2016BR035979

PATIENT
  Age: 13 Year
  Sex: Female
  Weight: 71 kg

DRUGS (4)
  1. HYDROXYUREA. [Concomitant]
     Active Substance: HYDROXYUREA
     Indication: PRODUCT USED FOR UNKNOWN INDICATION
     Dosage: UNK
     Route: 065
  2. EXJADE [Suspect]
     Active Substance: DEFERASIROX
     Indication: SICKLE CELL ANAEMIA
     Dosage: 10 MG/KG, QD (1 DF: 500 MG)
     Route: 048
  3. HYDREA [Concomitant]
     Active Substance: HYDROXYUREA
     Indication: PRODUCT USED FOR UNKNOWN INDICATION
     Dosage: UNK
     Route: 065
  4. EXJADE [Suspect]
     Active Substance: DEFERASIROX
     Dosage: 2 DF, UNK
     Route: 065

REACTIONS (11)
  - Malaise [Unknown]
  - Oropharyngeal pain [Unknown]
  - Cerebrovascular accident [Unknown]
  - Asthenia [Unknown]
  - Dizziness [Unknown]
  - Serum ferritin increased [Unknown]
  - Haemoglobin S increased [Unknown]
  - Pyrexia [Unknown]
  - Influenza [Unknown]
  - Inflammation [Unknown]
  - Headache [Unknown]

NARRATIVE: CASE EVENT DATE: 201603
